FAERS Safety Report 9135363 (Version 1)
Quarter: 2013Q1

REPORT INFORMATION
  Report Type: Spontaneous
  Country: US (occurrence: US)
  Receive Date: 20130304
  Receipt Date: 20130304
  Transmission Date: 20140127
  Serious: No
  Sender: FDA-Public Use
  Company Number: US-ENDO PHARMACEUTICALS INC.-ENDC20110183

PATIENT
  Age: 59 Year
  Sex: Female

DRUGS (1)
  1. ENDOCET [Suspect]
     Indication: PAIN
     Dosage: UNKNOWN
     Route: 048
     Dates: start: 201107

REACTIONS (10)
  - Pain [Recovered/Resolved]
  - Gait disturbance [Recovered/Resolved]
  - Ear pain [Unknown]
  - Oral discomfort [Recovered/Resolved]
  - Skin burning sensation [Recovered/Resolved]
  - Throat irritation [Recovered/Resolved]
  - Sensitivity of teeth [Recovered/Resolved]
  - Drug ineffective [Recovered/Resolved]
  - Malaise [Recovered/Resolved]
  - Dysgeusia [Unknown]
